FAERS Safety Report 10265202 (Version 1)
Quarter: 2014Q2

REPORT INFORMATION
  Report Type: Spontaneous
  Country: GB (occurrence: GB)
  Receive Date: 20140627
  Receipt Date: 20140627
  Transmission Date: 20141212
  Serious: Yes (Other)
  Sender: FDA-Public Use
  Company Number: GB-MERCK-1406GBR011347

PATIENT
  Age: 75 Year
  Sex: Female

DRUGS (1)
  1. ELOCON [Suspect]
     Route: 045

REACTIONS (3)
  - Myalgia [Unknown]
  - Arthralgia [Unknown]
  - Insomnia [Unknown]
